FAERS Safety Report 7266367-4 (Version None)
Quarter: 2011Q1

REPORT INFORMATION
  Report Type: 
  Country: None (occurrence: None)
  Receive Date: 20110131
  Receipt Date: 20110124
  Transmission Date: 20110831
  Serious: Yes (Other)
  Sender: FDA-Public Use
  Company Number: US-US-EMD SERONO, INC.-7000283

PATIENT
  Sex: Female
  Weight: 91 kg

DRUGS (7)
  1. REBIF [Suspect]
     Indication: MULTIPLE SCLEROSIS
     Route: 058
     Dates: start: 20071019, end: 20100401
  2. PREVACID [Concomitant]
     Indication: GASTRIC DISORDER
  3. IBUPROFEN [Concomitant]
     Indication: PREMEDICATION
  4. LEXAPRO [Concomitant]
     Indication: DEPRESSION
     Dates: start: 20080101
  5. BACLOFEN [Concomitant]
     Indication: MUSCLE SPASMS
  6. IBUPROFEN [Concomitant]
     Indication: PAIN
     Dates: end: 20100401
  7. BENICAR [Concomitant]
     Indication: HYPERTENSION

REACTIONS (4)
  - COGNITIVE DISORDER [None]
  - FALL [None]
  - CAROTID ARTERY STENOSIS [None]
  - HEMIPARESIS [None]
